FAERS Safety Report 8175246-X (Version None)
Quarter: 2012Q1

REPORT INFORMATION
  Report Type: 
  Country: None (occurrence: None)
  Receive Date: 20120229
  Receipt Date: 20120223
  Transmission Date: 20120608
  Serious: Yes (Disabling, Other)
  Sender: FDA-Public Use
  Company Number: CA-PFIZER INC-2011292231

PATIENT
  Age: 67 Year
  Sex: Female
  Weight: 56.689 kg

DRUGS (2)
  1. TEGRETOL-XR [Concomitant]
     Indication: EPILEPSY
     Dosage: 400 MG, 3X/DAY
     Route: 048
     Dates: start: 20020102
  2. EFFEXOR XR [Suspect]
     Indication: DEPRESSION
     Dosage: 150 MG, EVERY MORNING
     Route: 048
     Dates: start: 19990701, end: 20120201

REACTIONS (3)
  - DEMENTIA [None]
  - MEMORY IMPAIRMENT [None]
  - DISORIENTATION [None]
